FAERS Safety Report 17483424 (Version 2)
Quarter: 2021Q2

REPORT INFORMATION
  Report Type: Spontaneous
  Country: US (occurrence: US)
  Receive Date: 20200302
  Receipt Date: 20210525
  Transmission Date: 20210716
  Serious: No
  Sender: FDA-Public Use
  Company Number: US-VERTEX PHARMACEUTICALS-2020-003652

PATIENT
  Age: 19 Year
  Sex: Male
  Weight: 73 kg

DRUGS (12)
  1. PULMOZYME [Concomitant]
     Active Substance: DORNASE ALFA
     Dosage: 2.5 MILLIGRAM
     Dates: end: 2021
  2. PREVACID [Concomitant]
     Active Substance: LANSOPRAZOLE
     Dosage: UNK
  3. CAYSTON [Concomitant]
     Active Substance: AZTREONAM
     Dosage: 75 MILLIGRAM PER MILLILITRE, QID
     Dates: end: 2021
  4. URSODIOL. [Concomitant]
     Active Substance: URSODIOL
     Dosage: 250 MILLIGRAM TABLET
  5. CREON [Concomitant]
     Active Substance: PANCRELIPASE AMYLASE\PANCRELIPASE LIPASE\PANCRELIPASE PROTEASE
  6. ALBUTEROL [SALBUTAMOL] [Concomitant]
     Active Substance: ALBUTEROL
  7. TRIKAFTA [Suspect]
     Active Substance: ELEXACAFTOR\IVACAFTOR\TEZACAFTOR
     Indication: CYSTIC FIBROSIS
     Dosage: 2 ORANGE TABS (ELEXA 100 MG/ TEZA 50 MG/ IVA 75 MG) AM AND 1 BLUE TAB (IVA 150 MG) PM
     Route: 048
     Dates: start: 20200213
  8. VANCOMYCIN [Concomitant]
     Active Substance: VANCOMYCIN
  9. CREON [Concomitant]
     Active Substance: PANCRELIPASE AMYLASE\PANCRELIPASE LIPASE\PANCRELIPASE PROTEASE
  10. COLISTIN SULFATE [Concomitant]
     Active Substance: COLISTIN SULFATE
     Dosage: 2 DOSAGE FORM, QD (150 MG)
  11. COLISTIN SULFATE [Concomitant]
     Active Substance: COLISTIN SULFATE
     Dosage: 1 B UNIT POWDER (EA)
  12. VANCOMYCIN HCL [Concomitant]
     Active Substance: VANCOMYCIN HYDROCHLORIDE
     Dosage: 1 GRAM, VIAL

REACTIONS (3)
  - Diarrhoea [Not Recovered/Not Resolved]
  - Cough [Recovered/Resolved]
  - Abdominal pain upper [Unknown]

NARRATIVE: CASE EVENT DATE: 202002
